FAERS Safety Report 5188116-6 (Version None)
Quarter: 2006Q4

REPORT INFORMATION
  Report Type: 
  Country: None (occurrence: None)
  Receive Date: 20061221
  Receipt Date: 20061215
  Transmission Date: 20070319
  Serious: Yes (Death, Hospitalization)
  Sender: FDA-Public Use
  Company Number: FR-MERCK-0612FRA00050

PATIENT
  Age: 77 Year
  Sex: Male

DRUGS (3)
  1. PRIMAXIN [Suspect]
     Indication: INFECTION
     Route: 042
     Dates: start: 20061105, end: 20061117
  2. VANCOMYCIN [Suspect]
     Indication: INFECTION
     Route: 042
     Dates: start: 20061025, end: 20061115
  3. VORICONAZOLE [Suspect]
     Indication: RESPIRATORY MONILIASIS
     Route: 042
     Dates: start: 20061109, end: 20061116

REACTIONS (4)
  - DEATH [None]
  - HEPATIC FAILURE [None]
  - LEUKOCYTOSIS [None]
  - TOXIC SKIN ERUPTION [None]
